FAERS Safety Report 19504915 (Version 1)
Quarter: 2021Q3

REPORT INFORMATION
  Report Type: Spontaneous
  Country: DE (occurrence: DE)
  Receive Date: 20210708
  Receipt Date: 20210708
  Transmission Date: 20211014
  Serious: Yes (Hospitalization)
  Sender: FDA-Public Use
  Company Number: DE-SUN PHARMACEUTICAL INDUSTRIES LTD-2021RR-303309

PATIENT
  Age: 80 Year
  Sex: Female

DRUGS (10)
  1. COLECALCIFEROL (VITAMIN D) [Concomitant]
     Active Substance: CHOLECALCIFEROL
     Indication: PRODUCT USED FOR UNKNOWN INDICATION
     Dosage: 20000 IU, 1?0?0?0, CAPSULES ()
     Route: 048
  2. ACETYLSALICYLSAURE [Concomitant]
     Active Substance: ASPIRIN
     Indication: PRODUCT USED FOR UNKNOWN INDICATION
     Dosage: 100 MG, 1?0?0?0, TABLETS ()
     Route: 048
  3. DULAGLUTID [Concomitant]
     Active Substance: DULAGLUTIDE
     Indication: PRODUCT USED FOR UNKNOWN INDICATION
     Dosage: ONCE A WEEK, SOLUTION FOR INJECTION / INFUSION ()
     Route: 030
  4. AMITRIPTYLIN [Suspect]
     Active Substance: AMITRIPTYLINE
     Indication: PRODUCT USED FOR UNKNOWN INDICATION
     Dosage: 10 MG, 0?0?1?0, TABLETS ()
     Route: 048
  5. BRIVUDIN [Suspect]
     Active Substance: BRIVUDINE
     Indication: PRODUCT USED FOR UNKNOWN INDICATION
     Dosage: 125 MG, 1?0?0?0, TABLETS ()
     Route: 048
  6. GABAPENTIN. [Suspect]
     Active Substance: GABAPENTIN
     Indication: PRODUCT USED FOR UNKNOWN INDICATION
     Dosage: 300 MG, 1?1?1?0, TABLETS ()
     Route: 048
  7. MAGNESIUMCITRAT [Concomitant]
     Indication: PRODUCT USED FOR UNKNOWN INDICATION
     Dosage: 300 MG, 0?0?1?0, CAPSULES ()
     Route: 048
  8. CARVEDILOL. [Concomitant]
     Active Substance: CARVEDILOL
     Indication: PRODUCT USED FOR UNKNOWN INDICATION
     Dosage: 25 MG, 1?0?1?0, TABLETS ()
     Route: 048
  9. AMLODIPIN/HYDROCHLOROTHIAZID/OLMESARTAN [Concomitant]
     Indication: PRODUCT USED FOR UNKNOWN INDICATION
     Dosage: 5 /12.5/40 MG, 1?0?0?0, TABLETS ()
     Route: 048
  10. ATORVASTATIN [Concomitant]
     Active Substance: ATORVASTATIN
     Indication: PRODUCT USED FOR UNKNOWN INDICATION
     Dosage: 20 MG, 0?0?1?0, TABLETS ()
     Route: 048

REACTIONS (2)
  - Nausea [Recovering/Resolving]
  - Syncope [Recovered/Resolved]
